FAERS Safety Report 7009977-1 (Version None)
Quarter: 2010Q3

REPORT INFORMATION
  Report Type: 
  Country: None (occurrence: None)
  Receive Date: 20100923
  Receipt Date: 20100920
  Transmission Date: 20110219
  Serious: Yes (Hospitalization)
  Sender: FDA-Public Use
  Company Number: US-MERCK-1009USA01657

PATIENT
  Sex: Female

DRUGS (1)
  1. COZAAR [Suspect]
     Indication: BLOOD PRESSURE
     Route: 048

REACTIONS (1)
  - DRUG INEFFECTIVE [None]
